FAERS Safety Report 4647565-2 (Version None)
Quarter: 2005Q2

REPORT INFORMATION
  Report Type: 
  Country: None (occurrence: None)
  Receive Date: 20050426
  Receipt Date: 20041129
  Transmission Date: 20051028
  Serious: Yes (Other)
  Sender: FDA-Public Use
  Company Number: 2004BI000814

PATIENT
  Sex: Male
  Weight: 102.5129 kg

DRUGS (2)
  1. AVONEX [Suspect]
     Indication: MULTIPLE SCLEROSIS
     Dosage: 30 UG; QW; IM
     Route: 030
     Dates: start: 20020101, end: 20030101
  2. AVONEX [Suspect]
     Indication: MULTIPLE SCLEROSIS
     Dosage: 30 UG; QW; IM
     Route: 030
     Dates: start: 20030101, end: 20031201

REACTIONS (4)
  - BLOOD IRON INCREASED [None]
  - HEPATIC STEATOSIS [None]
  - PAIN [None]
  - PORPHYRIA NON-ACUTE [None]
